FAERS Safety Report 7041911-0 (Version None)
Quarter: 2010Q4

REPORT INFORMATION
  Report Type: 
  Country: None (occurrence: None)
  Receive Date: 20101013
  Receipt Date: 20090911
  Transmission Date: 20110411
  Serious: No
  Sender: FDA-Public Use
  Company Number: US-ASTRAZENECA-2009SE06852

PATIENT
  Age: 35 Year
  Sex: Male

DRUGS (1)
  1. SYMBICORT [Suspect]
     Indication: ASTHMA
     Dosage: 160
     Route: 055

REACTIONS (3)
  - DEVICE FAILURE [None]
  - DYSPNOEA [None]
  - WHEEZING [None]
